FAERS Safety Report 21727169 (Version 1)
Quarter: 2022Q4

REPORT INFORMATION
  Report Type: Spontaneous
  Country: US (occurrence: None)
  Receive Date: 20221213
  Receipt Date: 20221213
  Transmission Date: 20230112
  Serious: Yes (Hospitalization)
  Sender: FDA-Public Use
  Company Number: None

PATIENT
  Age: 68 Year
  Sex: Female

DRUGS (1)
  1. HUMIRA [Suspect]
     Active Substance: ADALIMUMAB
     Dates: start: 202111

REACTIONS (3)
  - Diarrhoea [None]
  - Vomiting [None]
  - Gastrointestinal ulcer [None]

NARRATIVE: CASE EVENT DATE: 20221122
